FAERS Safety Report 10616392 (Version 1)
Quarter: 2014Q4

REPORT INFORMATION
  Report Type: Spontaneous
  Country: FR (occurrence: FR)
  Receive Date: 20141201
  Receipt Date: 20141201
  Transmission Date: 20150529
  Serious: Yes (Death, Other)
  Sender: FDA-Public Use
  Company Number: FR-CELGENE-056-50794-14080892

PATIENT
  Age: 76 Year
  Sex: Male

DRUGS (2)
  1. MYTELASE [Concomitant]
     Active Substance: AMBENONIUM CHLORIDE
     Route: 065
     Dates: start: 200812
  2. VIDAZA [Suspect]
     Active Substance: AZACITIDINE
     Indication: ACUTE MYELOID LEUKAEMIA
     Dosage: 75 MILLIGRAM/SQ. METER
     Route: 058

REACTIONS (3)
  - Cardiac disorder [Fatal]
  - Acute kidney injury [Unknown]
  - Urinary tract infection [Unknown]
